FAERS Safety Report 11554087 (Version 1)
Quarter: 2015Q3

REPORT INFORMATION
  Report Type: Spontaneous
  Country: US (occurrence: US)
  Receive Date: 20150903
  Receipt Date: 20150903
  Transmission Date: 20151125
  Serious: No
  Sender: FDA-Public Use
  Company Number: US-ELI_LILLY_AND_COMPANY-US201008002738

PATIENT
  Sex: Male

DRUGS (6)
  1. LANTUS [Concomitant]
     Active Substance: INSULIN GLARGINE
  2. HUMALOG [Suspect]
     Active Substance: INSULIN LISPRO
     Indication: TYPE 1 DIABETES MELLITUS
     Dosage: 5 U, EACH MORNING
     Dates: start: 20000809
  3. HUMALOG [Suspect]
     Active Substance: INSULIN LISPRO
     Dosage: 3 U, EACH EVENING
     Dates: start: 20000809
  4. HUMALOG [Suspect]
     Active Substance: INSULIN LISPRO
     Dosage: 5 U, EACH MORNING
     Dates: start: 20000809
  5. SYNTHROID [Concomitant]
     Active Substance: LEVOTHYROXINE SODIUM
  6. HUMALOG [Suspect]
     Active Substance: INSULIN LISPRO
     Dosage: 3 U, EACH EVENING
     Dates: start: 20000809

REACTIONS (2)
  - Blood glucose decreased [Unknown]
  - Blood glucose increased [Unknown]
